FAERS Safety Report 9672211 (Version 1)
Quarter: 2013Q4

REPORT INFORMATION
  Report Type: Spontaneous
  Country: SE (occurrence: SE)
  Receive Date: 20131106
  Receipt Date: 20131106
  Transmission Date: 20140711
  Serious: Yes (Hospitalization, Other)
  Sender: FDA-Public Use
  Company Number: SE-ASTRAZENECA-2013SE79502

PATIENT
  Age: 32 Year
  Sex: Female

DRUGS (4)
  1. SEROQUEL [Suspect]
     Indication: PSYCHOTIC DISORDER
     Route: 048
     Dates: start: 2006, end: 2007
  2. CISORDINOL DEPOT [Suspect]
     Indication: PSYCHOTIC DISORDER
     Route: 058
  3. TRILAFON [Suspect]
     Indication: PSYCHOTIC DISORDER
     Route: 065
     Dates: start: 2006, end: 2007
  4. CISORDINOL ACUTARD [Suspect]
     Indication: PSYCHOTIC DISORDER
     Route: 065

REACTIONS (8)
  - Exposure during pregnancy [Unknown]
  - Abortion spontaneous [Unknown]
  - Oedema [Recovered/Resolved]
  - Acne [Recovered/Resolved]
  - Skin mass [Recovered/Resolved]
  - Eczema [Unknown]
  - Hypersensitivity [Recovered/Resolved]
  - Weight increased [Recovered/Resolved]
